FAERS Safety Report 14312238 (Version 2)
Quarter: 2018Q1

REPORT INFORMATION
  Report Type: Spontaneous
  Country: IT (occurrence: IT)
  Receive Date: 20171221
  Receipt Date: 20180306
  Transmission Date: 20180509
  Serious: Yes (Hospitalization)
  Sender: FDA-Public Use
  Company Number: IT-MERCK KGAA-2037535

PATIENT
  Age: 48 Year
  Sex: Female

DRUGS (7)
  1. TRUVADA [Concomitant]
     Active Substance: EMTRICITABINE\TENOFOVIR DISOPROXIL FUMARATE
     Route: 048
  2. LORAZEPAM. [Concomitant]
     Active Substance: LORAZEPAM
     Route: 048
  3. NORVIR [Concomitant]
     Active Substance: RITONAVIR
     Route: 048
  4. PANTOPRAZOLE [Concomitant]
     Active Substance: PANTOPRAZOLE
     Route: 048
  5. NOVOTHYROX [Suspect]
     Active Substance: LEVOTHYROXINE SODIUM
     Indication: PRODUCT USED FOR UNKNOWN INDICATION
     Route: 048
  6. DARUNAVIR [Concomitant]
     Active Substance: DARUNAVIR
     Route: 048
  7. METHADONE HYDROCHLORIDE. [Concomitant]
     Active Substance: METHADONE HYDROCHLORIDE
     Route: 048

REACTIONS (5)
  - Asthenia [Unknown]
  - Oedema [Unknown]
  - Hypercalcaemia [Unknown]
  - Constipation [Unknown]
  - Paraesthesia [Unknown]

NARRATIVE: CASE EVENT DATE: 20170908
